FAERS Safety Report 17876520 (Version 1)
Quarter: 2020Q2

REPORT INFORMATION
  Report Type: Spontaneous
  Country: CN (occurrence: CN)
  Receive Date: 20200609
  Receipt Date: 20200609
  Transmission Date: 20200714
  Serious: Yes (Other)
  Sender: FDA-Public Use
  Company Number: CN-FRESENIUS KABI-FK202005623

PATIENT
  Age: 51 Year
  Sex: Female
  Weight: 84 kg

DRUGS (2)
  1. LIPOVENOES MCT 20% [Suspect]
     Active Substance: EGG PHOSPHOLIPIDS\GLYCERIN\MEDIUM-CHAIN TRIGLYCERIDES\SOYBEAN OIL
     Indication: CEREBROSPINAL FLUID LEAKAGE
     Dosage: 250 ML (20-40 DROPS/MIN) QD
     Route: 041
     Dates: start: 20200427, end: 20200509
  2. SORBITOL/GLYCINE/ALANINE/SERINE/ASPARTIC ACID/CYSTINE/TYROSINE/LEUCINE/METHIONINE/PHENYLALANINE/HIST (COMPOUND AMINO ACID 18AA) [Suspect]
     Active Substance: AMINO ACIDS, SOURCE UNSPECIFIED
     Indication: CEREBROSPINAL FLUID LEAKAGE
     Dosage: 500 ML (20-40 DROPS/MIN) QD
     Route: 041
     Dates: start: 20200427, end: 20200509

REACTIONS (2)
  - Cough [Recovered/Resolved]
  - Vomiting [Recovered/Resolved]

NARRATIVE: CASE EVENT DATE: 20200427
